FAERS Safety Report 6862686-1 (Version None)
Quarter: 2010Q3

REPORT INFORMATION
  Report Type: 
  Country: None (occurrence: None)
  Receive Date: 20100721
  Receipt Date: 20100716
  Transmission Date: 20110219
  Serious: Yes (Hospitalization, Other)
  Sender: FDA-Public Use
  Company Number: BR-ROCHE-699953

PATIENT
  Sex: Female
  Weight: 60 kg

DRUGS (3)
  1. RIVOTRIL [Suspect]
     Indication: DEPRESSION
     Dosage: TWO TABLETS TAKEN AT NIGHT, OTHER INDICATION: INSOMNIA
     Route: 048
     Dates: start: 20070101
  2. RIVOTRIL [Suspect]
     Dosage: 10 TABLETS DAILY
     Route: 048
  3. SERTRALINE HCL [Concomitant]
     Dosage: TWO TABLETS DAILY
     Route: 048
     Dates: start: 20070101

REACTIONS (12)
  - AMNESIA [None]
  - ANGER [None]
  - APATHY [None]
  - ARRHYTHMIA [None]
  - CARDIOVASCULAR DISORDER [None]
  - CATHETER PLACEMENT [None]
  - DRUG INEFFECTIVE [None]
  - MEMORY IMPAIRMENT [None]
  - NAUSEA [None]
  - OVERDOSE [None]
  - SUICIDAL IDEATION [None]
  - SUICIDE ATTEMPT [None]
